FAERS Safety Report 25362542 (Version 1)
Quarter: 2025Q2

REPORT INFORMATION
  Report Type: Spontaneous
  Country: US (occurrence: None)
  Receive Date: 20250524
  Receipt Date: 20250524
  Transmission Date: 20250716
  Serious: No
  Sender: FDA-CTU
  Company Number: None

PATIENT
  Age: 70 Year
  Sex: Female

DRUGS (1)
  1. XDEMVY [Suspect]
     Active Substance: LOTILANER
     Dosage: 1 GTT DROP(S) TWICE  DY OPHTHALMIC
     Route: 047

REACTIONS (3)
  - Taste disorder [None]
  - Eye pruritus [None]
  - Pain [None]

NARRATIVE: CASE EVENT DATE: 20250524
